FAERS Safety Report 16501240 (Version 2)
Quarter: 2019Q3

REPORT INFORMATION
  Report Type: Spontaneous
  Country: IT (occurrence: IT)
  Receive Date: 20190701
  Receipt Date: 20190705
  Transmission Date: 20191004
  Serious: Yes (Hospitalization, Other)
  Sender: FDA-Public Use
  Company Number: IT-PFIZER INC-2019276682

PATIENT
  Age: 65 Year
  Sex: Male

DRUGS (6)
  1. GEMCITABINE HYDROCHLORIDE. [Suspect]
     Active Substance: GEMCITABINE HYDROCHLORIDE
     Indication: BLADDER CANCER
     Dosage: 1750 MG, CYCLIC (FOR EVERY 1 CYCLICAL)
     Route: 042
     Dates: start: 20190522, end: 20190522
  2. DEXAMETHASONE. [Concomitant]
     Active Substance: DEXAMETHASONE
     Dosage: UNK
  3. GLUCOPHAGE [Concomitant]
     Active Substance: METFORMIN HYDROCHLORIDE
     Dosage: UNK
  4. CISPLATIN. [Suspect]
     Active Substance: CISPLATIN
     Indication: BLADDER CANCER
     Dosage: 122.5 MG, CYCLIC (FOR EVERY 1 CYCLICAL)
     Route: 042
     Dates: start: 20190522, end: 20190522
  5. CARDICOR [Concomitant]
     Active Substance: BISOPROLOL
     Dosage: UNK
  6. RANITIDINE HYDROCHLORIDE. [Concomitant]
     Active Substance: RANITIDINE HYDROCHLORIDE
     Dosage: UNK

REACTIONS (3)
  - Venous thrombosis limb [Unknown]
  - Pulmonary embolism [Unknown]
  - Anaemia [Unknown]

NARRATIVE: CASE EVENT DATE: 20190604
